FAERS Safety Report 23076190 (Version 2)
Quarter: 2023Q4

REPORT INFORMATION
  Report Type: Spontaneous
  Country: IT (occurrence: IT)
  Receive Date: 20231017
  Receipt Date: 20231018
  Transmission Date: 20240109
  Serious: Yes (Other)
  Sender: FDA-Public Use
  Company Number: IT-BIOVITRUM-2023-IT-015891

PATIENT
  Age: 17 Year
  Sex: Female

DRUGS (6)
  1. EMAPALUMAB [Suspect]
     Active Substance: EMAPALUMAB
     Indication: Haemophagocytic lymphohistiocytosis
     Dosage: INITIAL DOSE
  2. EMAPALUMAB [Suspect]
     Active Substance: EMAPALUMAB
     Indication: Haemophagocytic lymphohistiocytosis
     Dosage: EVERY 3 DAYS
  3. ANAKINRA [Suspect]
     Active Substance: ANAKINRA
     Indication: Still^s disease
     Dosage: DAILY
  4. ANAKINRA [Suspect]
     Active Substance: ANAKINRA
     Dosage: EVERY OTHER DAY
  5. ANAKINRA [Suspect]
     Active Substance: ANAKINRA
     Dosage: INCREASED TO DAILY
  6. ANAKINRA [Suspect]
     Active Substance: ANAKINRA
     Dosage: DAILY

REACTIONS (2)
  - Salmonellosis [Unknown]
  - Off label use [Unknown]
